FAERS Safety Report 7350315-2 (Version None)
Quarter: 2011Q1

REPORT INFORMATION
  Report Type: 
  Country: None (occurrence: None)
  Receive Date: 20110222
  Receipt Date: 20110111
  Transmission Date: 20110831
  Serious: No
  Sender: FDA-Public Use
  Company Number: 025304

PATIENT

DRUGS (1)
  1. LACOSAMIDE [Suspect]
     Dosage: (50 MG BID, 50MG AM, 50MG PM ORAL)
     Route: 048

REACTIONS (1)
  - SINUS BRADYCARDIA [None]
